FAERS Safety Report 12467427 (Version 1)
Quarter: 2016Q2

REPORT INFORMATION
  Report Type: Spontaneous
  Country: US (occurrence: US)
  Receive Date: 20160615
  Receipt Date: 20160615
  Transmission Date: 20160815
  Serious: No
  Sender: FDA-Public Use
  Company Number: US-TEVA-596895USA

PATIENT
  Age: 71 Year
  Sex: Female
  Weight: 86.26 kg

DRUGS (1)
  1. CIPROFLOXACIN. [Suspect]
     Active Substance: CIPROFLOXACIN
     Indication: KIDNEY INFECTION
     Dosage: 1000 MILLIGRAM DAILY;
     Dates: start: 20150922, end: 20150922

REACTIONS (3)
  - Paraesthesia [Unknown]
  - Wrong technique in product usage process [Unknown]
  - Skin burning sensation [Unknown]

NARRATIVE: CASE EVENT DATE: 201509
